FAERS Safety Report 8650695 (Version 2)
Quarter: 2014Q3

REPORT INFORMATION
  Report Type: Spontaneous
  Country: US (occurrence: US)
  Receive Date: 20120705
  Receipt Date: 20140808
  Transmission Date: 20150326
  Serious: Yes (Hospitalization)
  Sender: FDA-Public Use
  Company Number: US-GLAXOSMITHKLINE-A0867469A

PATIENT
  Sex: Male
  Weight: 136.4 kg

DRUGS (7)
  1. ZESTRIL [Concomitant]
     Active Substance: LISINOPRIL
  2. GLUCOPHAGE [Concomitant]
     Active Substance: METFORMIN HYDROCHLORIDE
  3. LOPRESSOR [Concomitant]
     Active Substance: METOPROLOL TARTRATE
  4. AVANDIA [Suspect]
     Active Substance: ROSIGLITAZONE MALEATE
     Indication: DIABETES MELLITUS
     Dosage: 4MG PER DAY
     Route: 048
     Dates: start: 200101, end: 2009
  5. ZOCOR [Concomitant]
     Active Substance: SIMVASTATIN
  6. ZOLOFT [Concomitant]
     Active Substance: SERTRALINE HYDROCHLORIDE
  7. LOPID [Concomitant]
     Active Substance: GEMFIBROZIL

REACTIONS (11)
  - Myocardial infarction [Not Recovered/Not Resolved]
  - Mitral valve incompetence [Unknown]
  - Aortic valve stenosis [Unknown]
  - Cardiac failure congestive [Unknown]
  - Carotid artery stenosis [Unknown]
  - Renal failure chronic [Unknown]
  - Peripheral vascular disorder [Unknown]
  - Coronary artery disease [Unknown]
  - Lacunar infarction [Unknown]
  - Respiratory failure [Unknown]
  - Pericardial effusion [Unknown]
